FAERS Safety Report 9271254 (Version 1)
Quarter: 2013Q2

REPORT INFORMATION
  Report Type: Spontaneous
  Country: US (occurrence: US)
  Receive Date: 20130506
  Receipt Date: 20130506
  Transmission Date: 20140414
  Serious: Yes (Congenital Anomaly, Other)
  Sender: FDA-Public Use
  Company Number: US-ELI_LILLY_AND_COMPANY-US201304008034

PATIENT
  Sex: 0

DRUGS (2)
  1. PROZAC [Suspect]
     Dosage: 20 MG, QD
     Route: 064
  2. XANAX [Concomitant]
     Route: 064

REACTIONS (2)
  - Craniosynostosis [Recovered/Resolved]
  - Foetal exposure during pregnancy [Recovered/Resolved]
